FAERS Safety Report 10482628 (Version 3)
Quarter: 2015Q4

REPORT INFORMATION
  Report Type: Spontaneous
  Country: IT (occurrence: IT)
  Receive Date: 20140929
  Receipt Date: 20151028
  Transmission Date: 20160304
  Serious: Yes (Death, Life-Threatening, Hospitalization, Other)
  Sender: FDA-Public Use
  Company Number: PHHY2014IT126892

PATIENT
  Age: 73 Year
  Sex: Male

DRUGS (11)
  1. TACROLIMUS. [Suspect]
     Active Substance: TACROLIMUS
     Indication: RENAL TRANSPLANT
     Route: 065
  2. PREDNISONE. [Suspect]
     Active Substance: PREDNISONE
     Indication: RENAL TRANSPLANT
     Route: 065
  3. LEVOFLOXACIN. [Concomitant]
     Active Substance: LEVOFLOXACIN
     Indication: PRODUCT USED FOR UNKNOWN INDICATION
     Route: 048
  4. MYCOPHENOLATE MOFETIL. [Suspect]
     Active Substance: MYCOPHENOLATE MOFETIL
     Indication: IMMUNOSUPPRESSANT DRUG THERAPY
  5. MYCOPHENOLATE MOFETIL. [Suspect]
     Active Substance: MYCOPHENOLATE MOFETIL
     Indication: RENAL TRANSPLANT
     Route: 065
  6. SIROLIMUS. [Suspect]
     Active Substance: SIROLIMUS
     Indication: IMMUNOSUPPRESSANT DRUG THERAPY
  7. CICLOSPORIN [Suspect]
     Active Substance: CYCLOSPORINE
     Indication: RENAL TRANSPLANT
     Route: 065
  8. CICLOSPORIN [Suspect]
     Active Substance: CYCLOSPORINE
     Indication: IMMUNOSUPPRESSANT DRUG THERAPY
  9. PREDNISONE. [Suspect]
     Active Substance: PREDNISONE
     Indication: IMMUNOSUPPRESSANT DRUG THERAPY
  10. SIROLIMUS. [Suspect]
     Active Substance: SIROLIMUS
     Indication: RENAL TRANSPLANT
     Route: 065
  11. TACROLIMUS. [Suspect]
     Active Substance: TACROLIMUS
     Indication: IMMUNOSUPPRESSANT DRUG THERAPY

REACTIONS (6)
  - Visceral leishmaniasis [Unknown]
  - Pyrexia [Unknown]
  - Malaise [Unknown]
  - Chills [Unknown]
  - Kidney transplant rejection [Unknown]
  - Cerebrovascular accident [Fatal]
